FAERS Safety Report 6542819-7 (Version None)
Quarter: 2010Q1

REPORT INFORMATION
  Report Type: 
  Country: None (occurrence: None)
  Receive Date: 20100114
  Receipt Date: 20100104
  Transmission Date: 20100710
  Serious: Yes (Hospitalization, Other)
  Sender: FDA-Public Use
  Company Number: A-CH2009-31257

PATIENT
  Age: 75 Year
  Sex: Female

DRUGS (8)
  1. TRACLEER [Suspect]
     Indication: PULMONARY ARTERIAL HYPERTENSION
     Dosage: 62.5 MG, BID, ORAL
     Route: 048
     Dates: start: 20091112
  2. BUMETANIDE [Concomitant]
  3. DIGOXIN [Concomitant]
  4. WARFARIN SODIUM [Concomitant]
  5. BISOPROLOL FUMARATE [Concomitant]
  6. REVATIO [Concomitant]
  7. LANSOPRAZOLE [Concomitant]
  8. ATORVASTATIN CALCIUM [Concomitant]

REACTIONS (2)
  - PAROTID GLAND ENLARGEMENT [None]
  - PAROTITIS [None]
